FAERS Safety Report 7807895-X (Version None)
Quarter: 2011Q4

REPORT INFORMATION
  Report Type: 
  Country: None (occurrence: None)
  Receive Date: 20111011
  Receipt Date: 20111004
  Transmission Date: 20120403
  Serious: Yes (Hospitalization, Other)
  Sender: FDA-Public Use
  Company Number: ES-PFIZER INC-2011237461

PATIENT
  Age: 58 Year
  Sex: Male

DRUGS (4)
  1. ATORVASTATIN CALCIUM [Suspect]
     Dosage: 40 MG, DAILY
     Dates: start: 20020101
  2. ENALAPRIL MALEATE AND HYDROCHLOROTHIAZIDE [Concomitant]
     Dosage: ENALAPRIL 20MG/ HYDROCHLOROTHIAZIDE 12.5 MG, DAILY
     Dates: start: 20020101
  3. GLIMEPIRIDE [Concomitant]
     Dosage: UNK
     Dates: start: 20020101
  4. EZETIMIBE [Suspect]
     Dosage: UNK

REACTIONS (2)
  - AUTOIMMUNE HEPATITIS [None]
  - LIVER INJURY [None]
